FAERS Safety Report 22169702 (Version 2)
Quarter: 2023Q2

REPORT INFORMATION
  Report Type: Spontaneous
  Country: US (occurrence: US)
  Receive Date: 20230404
  Receipt Date: 20230417
  Transmission Date: 20230722
  Serious: Yes (Other)
  Sender: FDA-Public Use
  Company Number: US-002147023-NVSC2023US076567

PATIENT
  Age: 89 Year
  Sex: Female

DRUGS (5)
  1. BEOVU [Suspect]
     Active Substance: BROLUCIZUMAB-DBLL
     Indication: Age-related macular degeneration
     Dosage: UNK (LOADING DOSE, RIGHT EYE, OD, TIME PERIOD OF 42)
     Route: 065
     Dates: start: 20200403
  2. BEOVU [Suspect]
     Active Substance: BROLUCIZUMAB-DBLL
     Dosage: UNK (LOADING DOSE, RIGHT EYE, OD, TIME PERIOD OF 42)
     Route: 065
     Dates: start: 20200515
  3. BEOVU [Suspect]
     Active Substance: BROLUCIZUMAB-DBLL
     Dosage: UNK (LOADING DOSE, RIGHT EYE, OD, TIME PERIOD OF 42)
     Route: 065
     Dates: start: 20200626
  4. BEOVU [Suspect]
     Active Substance: BROLUCIZUMAB-DBLL
     Dosage: UNK (LOADING DOSE, RIGHT EYE, OD, TIME PERIOD OF 42)
     Route: 065
     Dates: start: 20200807
  5. BEOVU [Suspect]
     Active Substance: BROLUCIZUMAB-DBLL
     Dosage: UNK (LOADING DOSE, RIGHT EYE, OD)
     Route: 065
     Dates: start: 20201002

REACTIONS (3)
  - Vitritis [Recovered/Resolved]
  - Uveitis [Unknown]
  - Visual impairment [Unknown]

NARRATIVE: CASE EVENT DATE: 20200812
